FAERS Safety Report 7313233-1 (Version None)
Quarter: 2011Q1

REPORT INFORMATION
  Report Type: 
  Country: None (occurrence: None)
  Receive Date: 20110225
  Receipt Date: 20110215
  Transmission Date: 20110831
  Serious: No
  Sender: FDA-Public Use
  Company Number: JP-JNJFOC-20110203529

PATIENT
  Age: 88 Year
  Sex: Female

DRUGS (5)
  1. LENDORMIN [Concomitant]
     Route: 048
  2. MEPTIN [Concomitant]
     Route: 048
  3. DUROTEP MT [Suspect]
     Indication: PAIN
     Route: 062
  4. INTAL [Concomitant]
     Route: 065
  5. NAUZELIN [Concomitant]
     Route: 054

REACTIONS (5)
  - INAPPROPRIATE SCHEDULE OF DRUG ADMINISTRATION [None]
  - EUPHORIC MOOD [None]
  - INSOMNIA [None]
  - ABNORMAL BEHAVIOUR [None]
  - DRUG PRESCRIBING ERROR [None]
